FAERS Safety Report 25015910 (Version 3)
Quarter: 2025Q3

REPORT INFORMATION
  Report Type: Spontaneous
  Country: US (occurrence: US)
  Receive Date: 20250227
  Receipt Date: 20250826
  Transmission Date: 20251021
  Serious: No
  Sender: AMNEAL
  Company Number: US-AMNEAL PHARMACEUTICALS-2024-AMRX-04634

PATIENT

DRUGS (6)
  1. CREXONT [Suspect]
     Active Substance: CARBIDOPA\LEVODOPA
     Indication: Parkinson^s disease
     Dosage: 04 CAPSULES, DAILY
     Route: 065
  2. CREXONT [Suspect]
     Active Substance: CARBIDOPA\LEVODOPA
     Dosage: 02 CAPSULES (52.5/210 MG), 3X/DAY
     Route: 048
     Dates: start: 20241221
  3. CREXONT [Suspect]
     Active Substance: CARBIDOPA\LEVODOPA
     Dosage: 3 CAPSULES, (210/140 MG ) DAILY
     Route: 065
     Dates: start: 202412
  4. CREXONT [Suspect]
     Active Substance: CARBIDOPA\LEVODOPA
     Dosage: 02 CAPSULES (52.5/210 MG), 4X/DAY
     Route: 048
     Dates: start: 202412
  5. CREXONT [Suspect]
     Active Substance: CARBIDOPA\LEVODOPA
     Dosage: (52.5/210 MG), 06 CAPSULES, DAILY (2 TWICE DAILY AND 1 TWICE DAILY)
     Route: 048
  6. CREXONT [Suspect]
     Active Substance: CARBIDOPA\LEVODOPA
     Dosage: (52.5/210 MG), 5 CAPSULES, DAILY
     Route: 048

REACTIONS (11)
  - Feeling abnormal [Unknown]
  - Drug intolerance [Unknown]
  - Hyperventilation [Not Recovered/Not Resolved]
  - Allergic reaction to excipient [Unknown]
  - Drug effect less than expected [Unknown]
  - Treatment noncompliance [Unknown]
  - Dyskinesia [Not Recovered/Not Resolved]
  - Nausea [Unknown]
  - Product substitution issue [Unknown]
  - Product use issue [Unknown]
  - Product use issue [Unknown]

NARRATIVE: CASE EVENT DATE: 20250613
